FAERS Safety Report 7397848-0 (Version None)
Quarter: 2011Q2

REPORT INFORMATION
  Report Type: 
  Country: None (occurrence: None)
  Receive Date: 20110406
  Receipt Date: 20110328
  Transmission Date: 20111010
  Serious: Yes (Other)
  Sender: FDA-Public Use
  Company Number: BR-ASTRAZENECA-2011SE17657

PATIENT
  Age: 51 Year
  Sex: Female
  Weight: 75 kg

DRUGS (6)
  1. MERITLA [Concomitant]
     Route: 048
  2. UNKNOWN ANTI-INFLAMMATORY [Suspect]
     Indication: PERIPHERAL NERVE INFECTION
     Route: 048
     Dates: start: 20110101
  3. SELOZOK [Suspect]
     Indication: HYPERTENSION
     Route: 048
  4. LIPITOR [Concomitant]
     Route: 048
  5. PRESSAT [Concomitant]
     Route: 048
  6. CLOPIDOGREL SULPHATE [Concomitant]
     Route: 048

REACTIONS (4)
  - BLOOD PRESSURE INCREASED [None]
  - FATIGUE [None]
  - ARTERIAL OCCLUSIVE DISEASE [None]
  - PERIPHERAL NERVE INFECTION [None]
